FAERS Safety Report 18775697 (Version 1)
Quarter: 2021Q1

REPORT INFORMATION
  Report Type: Spontaneous
  Country: US (occurrence: US)
  Receive Date: 20210122
  Receipt Date: 20210122
  Transmission Date: 20210419
  Serious: Yes (Hospitalization)
  Sender: FDA-Public Use
  Company Number: US-MYLANLABS-2021M1003932

PATIENT
  Age: 58 Year
  Sex: Female

DRUGS (1)
  1. HYDROXYCHLOROQUINE [Suspect]
     Active Substance: HYDROXYCHLOROQUINE
     Indication: SCLERODERMA
     Dosage: 200 MILLIGRAM, BID
     Route: 065

REACTIONS (12)
  - Atrioventricular block complete [Recovering/Resolving]
  - Tricuspid valve incompetence [Recovering/Resolving]
  - Diastolic dysfunction [Recovering/Resolving]
  - Toxicity to various agents [Recovering/Resolving]
  - Right ventricular dysfunction [Recovering/Resolving]
  - Left ventricular dysfunction [Recovering/Resolving]
  - Systolic dysfunction [Recovering/Resolving]
  - Myocardial infarction [Recovering/Resolving]
  - Cardiac failure [Recovering/Resolving]
  - Restrictive cardiomyopathy [Recovering/Resolving]
  - Cardiogenic shock [Recovering/Resolving]
  - Off label use [Unknown]
